FAERS Safety Report 8531443-2 (Version None)
Quarter: 2012Q3

REPORT INFORMATION
  Report Type: 
  Country: None (occurrence: None)
  Receive Date: 20120723
  Receipt Date: 20120712
  Transmission Date: 20120928
  Serious: Yes (Other)
  Sender: FDA-Public Use
  Company Number: US-VERTEX PHARMACEUTICALS INC.-AE-2012-000858

PATIENT
  Sex: Male

DRUGS (3)
  1. INCIVEK [Suspect]
     Indication: HEPATITIS C
     Route: 048
     Dates: start: 20111120
  2. RIBAVIRIN [Concomitant]
     Indication: HEPATITIS C
     Route: 048
     Dates: start: 20111120
  3. PEGASYS [Concomitant]
     Indication: HEPATITIS C
     Route: 058
     Dates: start: 20111120

REACTIONS (8)
  - ASCITES [None]
  - ANAEMIA [None]
  - SINUSITIS [None]
  - DYSGEUSIA [None]
  - NIGHT SWEATS [None]
  - BLOOD URIC ACID INCREASED [None]
  - INSOMNIA [None]
  - BODY TEMPERATURE INCREASED [None]
